FAERS Safety Report 21794141 (Version 1)
Quarter: 2022Q4

REPORT INFORMATION
  Report Type: Other
  Country: IT (occurrence: IT)
  Receive Date: 20221229
  Receipt Date: 20221229
  Transmission Date: 20230113
  Serious: Yes (Hospitalization)
  Sender: FDA-Public Use
  Company Number: IT-PL-000023

PATIENT
  Age: 56 Year
  Sex: Male

DRUGS (1)
  1. DOXAZOSIN [Suspect]
     Active Substance: DOXAZOSIN MESYLATE
     Indication: Product used for unknown indication
     Route: 065

REACTIONS (4)
  - Oedema [Unknown]
  - Hepatomegaly [Unknown]
  - Haematuria [Recovered/Resolved]
  - Proteinuria [Recovered/Resolved]
